FAERS Safety Report 7592809-0 (Version None)
Quarter: 2011Q3

REPORT INFORMATION
  Report Type: 
  Country: None (occurrence: None)
  Receive Date: 20110706
  Receipt Date: 20110630
  Transmission Date: 20111222
  Serious: No
  Sender: FDA-Public Use
  Company Number: US-PFIZER INC-2011147920

PATIENT
  Sex: Male

DRUGS (1)
  1. LYRICA [Suspect]
     Dosage: UNK

REACTIONS (3)
  - SPERM CONCENTRATION DECREASED [None]
  - SPERMATOZOA PROGRESSIVE MOTILITY DECREASED [None]
  - SPERMATOZOA MORPHOLOGY ABNORMAL [None]
